FAERS Safety Report 6547340-8 (Version None)
Quarter: 2010Q1

REPORT INFORMATION
  Report Type: 
  Country: None (occurrence: None)
  Receive Date: 20100122
  Receipt Date: 20100115
  Transmission Date: 20100710
  Serious: No
  Sender: FDA-Public Use
  Company Number: US-B.I. PHARMACEUTICALS,INC./RIDGEFIELD-2010-BP-00046BP

PATIENT
  Sex: Male
  Weight: 81.3 kg

DRUGS (2)
  1. VIRAMUNE [Suspect]
     Indication: HIV INFECTION
     Route: 048
     Dates: start: 20090203
  2. VIRAMUNE [Suspect]
     Dosage: 200 MG
     Route: 048
     Dates: start: 20091214, end: 20091228

REACTIONS (1)
  - OVERDOSE [None]
